FAERS Safety Report 8828893 (Version 1)
Quarter: 2012Q4

REPORT INFORMATION
  Report Type: 
  Country: US (occurrence: US)
  Receive Date: 20121008
  Receipt Date: 20121008
  Transmission Date: 20130627
  Serious: Yes (Hospitalization)
  Sender: FDA-Public Use
  Company Number: US-009507513-1210USA002606

PATIENT
  Age: 54 Year
  Sex: Male

DRUGS (4)
  1. JANUVIA [Suspect]
     Indication: TYPE 2 DIABETES MELLITUS
     Dosage: UNK
     Route: 048
     Dates: start: 201201, end: 20120409
  2. METFORMIN [Concomitant]
  3. LISINOPRIL [Concomitant]
  4. AMBIEN [Concomitant]

REACTIONS (1)
  - Pancreatitis [Recovered/Resolved]
